FAERS Safety Report 10404169 (Version 1)
Quarter: 2014Q1

REPORT INFORMATION
  Report Type: Spontaneous
  Country: US (occurrence: None)
  Receive Date: 20131224
  Receipt Date: 20131224
  Transmission Date: 20141002
  Serious: Yes (Other)
  Sender: FDA-Public Use
  Company Number: PHEH2013US017571

PATIENT
  Age: 59 Year
  Sex: Female
  Weight: 79.8 kg

DRUGS (3)
  1. AFINITOR (RAD) TABLET, 10MG [Suspect]
     Indication: RENAL CANCER METASTATIC
     Route: 048
     Dates: start: 20130605
  2. SYNTHROID (LEVOTHYROXINE SODIUM) [Concomitant]
  3. MULTI-VIT (VITAMIN NOS) [Concomitant]

REACTIONS (2)
  - Hyperglycaemia [None]
  - Fatigue [None]
